FAERS Safety Report 17397524 (Version 1)
Quarter: 2020Q1

REPORT INFORMATION
  Report Type: Spontaneous
  Country: US (occurrence: US)
  Receive Date: 20200210
  Receipt Date: 20200210
  Transmission Date: 20200409
  Serious: No
  Sender: FDA-Public Use
  Company Number: US-TRIS PHARMA, INC.-20US008770

PATIENT

DRUGS (2)
  1. HYDROCODONE + APAP [Suspect]
     Active Substance: ACETAMINOPHEN\HYDROCODONE BITARTRATE
     Indication: PAIN
     Dosage: 1 DOSAGE FORM, Q 4 HR
     Route: 048
     Dates: start: 2019
  2. HYDROCODONE + APAP [Suspect]
     Active Substance: ACETAMINOPHEN\HYDROCODONE BITARTRATE
     Dosage: 1 DOSAGE FORM, Q 4 HR
     Route: 048
     Dates: start: 2019, end: 2019

REACTIONS (10)
  - Cardiac discomfort [Not Recovered/Not Resolved]
  - Dyspnoea [Not Recovered/Not Resolved]
  - Therapeutic product effect decreased [Unknown]
  - Sinus congestion [Not Recovered/Not Resolved]
  - Food interaction [Unknown]
  - Blood pressure decreased [Unknown]
  - Palpitations [Not Recovered/Not Resolved]
  - Heart rate irregular [Unknown]
  - Chest pain [Unknown]
  - Nasal congestion [Not Recovered/Not Resolved]

NARRATIVE: CASE EVENT DATE: 2019
